FAERS Safety Report 14373250 (Version 1)
Quarter: 2018Q1

REPORT INFORMATION
  Report Type: Spontaneous
  Country: AT (occurrence: AT)
  Receive Date: 20180110
  Receipt Date: 20180110
  Transmission Date: 20180509
  Serious: Yes (Other)
  Sender: FDA-Public Use
  Company Number: AT-TEVA-2018-AT-842902

PATIENT
  Age: 39 Year
  Sex: Male

DRUGS (17)
  1. TRUXAL [Suspect]
     Active Substance: CHLORPROTHIXENE
     Route: 048
     Dates: start: 20160422
  2. OLANZAPINE. [Suspect]
     Active Substance: OLANZAPINE
     Route: 048
     Dates: start: 20160420
  3. TRUXAL [Suspect]
     Active Substance: CHLORPROTHIXENE
     Indication: ACUTE PSYCHOSIS
     Route: 048
     Dates: start: 20160426, end: 20160505
  4. ZYPREXA [Suspect]
     Active Substance: OLANZAPINE
     Indication: PRODUCT USED FOR UNKNOWN INDICATION
     Route: 048
     Dates: start: 20160420
  5. ABILIFY [Suspect]
     Active Substance: ARIPIPRAZOLE
     Indication: ACUTE PSYCHOSIS
     Route: 048
     Dates: start: 20160420, end: 20160421
  6. ABILIFY [Suspect]
     Active Substance: ARIPIPRAZOLE
     Indication: PRODUCT USED FOR UNKNOWN INDICATION
     Route: 048
     Dates: start: 20160507, end: 20160526
  7. ABILIFY [Suspect]
     Active Substance: ARIPIPRAZOLE
     Route: 048
     Dates: start: 20160528
  8. TRUXAL [Suspect]
     Active Substance: CHLORPROTHIXENE
     Indication: PRODUCT USED FOR UNKNOWN INDICATION
     Route: 048
     Dates: start: 20160425, end: 20160425
  9. TRUXAL [Suspect]
     Active Substance: CHLORPROTHIXENE
     Route: 048
     Dates: start: 20160424, end: 20160424
  10. ZYPREXA [Suspect]
     Active Substance: OLANZAPINE
     Indication: ACUTE PSYCHOSIS
     Route: 048
     Dates: start: 20160415
  11. ALPRAZOLAM. [Concomitant]
     Active Substance: ALPRAZOLAM
     Indication: PRODUCT USED FOR UNKNOWN INDICATION
     Route: 065
     Dates: start: 20160425
  12. ABILIFY [Suspect]
     Active Substance: ARIPIPRAZOLE
     Route: 048
     Dates: start: 20160422, end: 20160506
  13. TRUXAL [Suspect]
     Active Substance: CHLORPROTHIXENE
     Route: 048
     Dates: start: 20160506, end: 20160517
  14. OLANZAPINE. [Suspect]
     Active Substance: OLANZAPINE
     Indication: ACUTE PSYCHOSIS
     Route: 048
     Dates: start: 20160415
  15. ABILIFY [Suspect]
     Active Substance: ARIPIPRAZOLE
     Route: 048
     Dates: start: 20160527, end: 20160527
  16. TRUXAL [Suspect]
     Active Substance: CHLORPROTHIXENE
     Route: 048
     Dates: start: 20160518
  17. XANOR [Concomitant]
     Active Substance: ALPRAZOLAM
     Indication: PRODUCT USED FOR UNKNOWN INDICATION
     Route: 065
     Dates: start: 20160425

REACTIONS (4)
  - Akathisia [Unknown]
  - Off label use [Unknown]
  - Hepatic enzyme increased [Recovering/Resolving]
  - Product use in unapproved indication [Unknown]

NARRATIVE: CASE EVENT DATE: 20160429
